FAERS Safety Report 7401447-1 (Version None)
Quarter: 2011Q2

REPORT INFORMATION
  Report Type: 
  Country: None (occurrence: None)
  Receive Date: 20110407
  Receipt Date: 20110325
  Transmission Date: 20111010
  Serious: Yes (Other)
  Sender: FDA-Public Use
  Company Number: JP-MYLANLABS-2011S1006516

PATIENT
  Age: 33 Year
  Sex: Female

DRUGS (5)
  1. BUCILLAMINE [Concomitant]
     Indication: SYSTEMIC SCLEROSIS
     Route: 065
  2. PREDNISOLONE [Concomitant]
     Indication: SYSTEMIC SCLEROSIS
     Route: 065
  3. PREDNISOLONE [Concomitant]
     Indication: INTERSTITIAL LUNG DISEASE
     Route: 065
  4. PREDNISOLONE [Concomitant]
     Route: 065
  5. AZATHIOPRINE [Suspect]
     Route: 065
     Dates: start: 20070301

REACTIONS (1)
  - APLASIA PURE RED CELL [None]
